FAERS Safety Report 13873680 (Version 1)
Quarter: 2017Q3

REPORT INFORMATION
  Report Type: Spontaneous
  Country: RU (occurrence: RU)
  Receive Date: 20170816
  Receipt Date: 20170816
  Transmission Date: 20171127
  Serious: Yes (Hospitalization, Other)
  Sender: FDA-Public Use
  Company Number: RU-ASTRAZENECA-2017SE82159

PATIENT
  Age: 66 Year
  Sex: Female
  Weight: 90 kg

DRUGS (8)
  1. ACETYLSALICYLIC ACID [Concomitant]
     Active Substance: ASPIRIN
  2. PREDUCTAL A [Concomitant]
  3. DIABETON MB [Concomitant]
     Active Substance: GLICLAZIDE
  4. IVABRADINE [Concomitant]
     Active Substance: IVABRADINE
  5. BISOPROLOL [Concomitant]
     Active Substance: BISOPROLOL
  6. ATORVASTATIN [Concomitant]
     Active Substance: ATORVASTATIN
  7. BRILINTA [Suspect]
     Active Substance: TICAGRELOR
     Indication: MYOCARDIAL INFARCTION
     Route: 048
     Dates: start: 201703
  8. VEROSPIRON [Concomitant]
     Active Substance: SPIRONOLACTONE

REACTIONS (2)
  - Gastritis erosive [Unknown]
  - Vascular stent occlusion [Unknown]
